FAERS Safety Report 10042220 (Version 1)
Quarter: 2014Q1

REPORT INFORMATION
  Report Type: Report from Study
  Country: US (occurrence: US)
  Receive Date: 20140327
  Receipt Date: 20140327
  Transmission Date: 20141002
  Serious: Yes (Hospitalization)
  Sender: FDA-Public Use
  Company Number: PHEH2014US005934

PATIENT
  Age: 91 Year
  Sex: Male

DRUGS (12)
  1. EXELON [Suspect]
     Dosage: UNK UKN, UNK
  2. MIRTAZAPINE [Suspect]
     Dosage: UNK UKN, UNK
  3. DEPAKOTE [Concomitant]
     Dosage: UNK UKN, UNK
  4. ELIQUIS [Concomitant]
     Dosage: UNK UKN, UNK
  5. DIGOXIN [Concomitant]
     Dosage: UNK UKN, UNK
  6. FLOMAX//MORNIFLUMATE [Concomitant]
     Dosage: UNK UKN, UNK
  7. FUROSEMIDE [Concomitant]
     Dosage: UNK UKN, UNK
  8. METOPROLOL [Concomitant]
     Dosage: UNK UKN, UNK
  9. MAGNESIUM OXIDE [Concomitant]
     Dosage: UNK UKN, UNK
  10. POTASSIUM CHLORIDE [Concomitant]
     Dosage: UNK UKN, UNK
  11. PREDNISOLONE [Concomitant]
     Dosage: UNK UKN, UNK
  12. MURO 128 [Concomitant]
     Dosage: UNK UKN, UNK

REACTIONS (7)
  - Cellulitis [Recovering/Resolving]
  - Paranoia [Recovering/Resolving]
  - Pneumonia [Recovering/Resolving]
  - Dysarthria [Recovering/Resolving]
  - Dysphagia [Recovering/Resolving]
  - Atrial fibrillation [Recovering/Resolving]
  - Confusional state [Recovering/Resolving]
